FAERS Safety Report 21612501 (Version 1)
Quarter: 2022Q4

REPORT INFORMATION
  Report Type: Report from Study
  Country: IT (occurrence: IT)
  Receive Date: 20221118
  Receipt Date: 20221118
  Transmission Date: 20230113
  Serious: Yes (Hospitalization)
  Sender: FDA-Public Use
  Company Number: None

PATIENT
  Age: 10 Year
  Sex: Female
  Weight: 39 kg

DRUGS (4)
  1. METHOTREXATE (METHOTREXATE SODIUM) [Suspect]
     Active Substance: METHOTREXATE SODIUM
     Indication: Acute lymphocytic leukaemia
     Dosage: 12 MG ON 9/14 AND 9/28/22, DURATION: 14 DAYS
     Route: 065
     Dates: start: 20220914, end: 20220928
  2. THIOGUANINE ANHYDROUS [Suspect]
     Active Substance: THIOGUANINE ANHYDROUS
     Indication: Acute lymphocytic leukaemia
     Dosage: 72 MILLIGRAM DAILY; 72 MG/DAY, DURATION: 24 DAYS
     Route: 065
     Dates: start: 20220909, end: 20221003
  3. CYTARABINE [Suspect]
     Active Substance: CYTARABINE
     Indication: Acute lymphocytic leukaemia
     Dosage: 93 MG/DAY FROM 09/12 TO 09/15/22, 93 MG/DAY FROM DAY 28/09 TO DAY 01/10/22, DURATION: 19 DAYS
     Route: 065
     Dates: start: 20220912, end: 20221001
  4. CYCLOPHOSPHAMIDE [Suspect]
     Active Substance: CYCLOPHOSPHAMIDE
     Indication: Acute lymphocytic leukaemia
     Dosage: 1240 MILLIGRAM DAILY; 1240 MG/DAY
     Dates: start: 20220909, end: 20220909

REACTIONS (2)
  - Febrile neutropenia [Recovered/Resolved]
  - Constipation [Recovered/Resolved]

NARRATIVE: CASE EVENT DATE: 20220912
